FAERS Safety Report 11109534 (Version 1)
Quarter: 2015Q2

REPORT INFORMATION
  Report Type: Spontaneous
  Country: US (occurrence: US)
  Receive Date: 20150513
  Receipt Date: 20150513
  Transmission Date: 20150821
  Serious: No
  Sender: FDA-Public Use
  Company Number: US-MYLANLABS-2015M1007436

PATIENT
  Sex: Female
  Weight: 69.39 kg

DRUGS (1)
  1. XULANE [Suspect]
     Active Substance: ETHINYL ESTRADIOL\NORELGESTROMIN
     Indication: CONTRACEPTION
     Dosage: 150/35 ?G/DAY, QWK FOR 3W OFF 1W
     Route: 062
     Dates: start: 201409

REACTIONS (1)
  - Metrorrhagia [Not Recovered/Not Resolved]
